FAERS Safety Report 8803604 (Version 2)
Quarter: 2012Q4

REPORT INFORMATION
  Report Type: Report from Study
  Country: US (occurrence: US)
  Receive Date: 20120924
  Receipt Date: 20121030
  Transmission Date: 20130627
  Serious: Yes (Death, Hospitalization)
  Sender: FDA-Public Use
  Company Number: US-ASTELLAS-2012US008009

PATIENT
  Age: 85 None
  Sex: Female

DRUGS (1)
  1. ERLOTINIB TABLET [Suspect]
     Indication: LUNG CARCINOMA CELL TYPE UNSPECIFIED STAGE 0
     Dosage: 100 mg, UID/QD
     Route: 048
     Dates: start: 20111101, end: 20120803

REACTIONS (4)
  - Incorrect dose administered [Unknown]
  - Death [Fatal]
  - Non-small cell lung cancer [Unknown]
  - Urinary tract infection [Unknown]
